FAERS Safety Report 4614343-X (Version None)
Quarter: 2005Q1

REPORT INFORMATION
  Report Type: 
  Country: None (occurrence: None)
  Receive Date: 20050315
  Receipt Date: 20041223
  Transmission Date: 20050727
  Serious: No
  Sender: FDA-Public Use
  Company Number: A01200500860

PATIENT
  Sex: Male

DRUGS (4)
  1. PLAQUENIL [Suspect]
  2. ASPIRIN TAB [Concomitant]
  3. FOSAMAX [Concomitant]
  4. PREDNISOLONE [Concomitant]

REACTIONS (3)
  - GYNAECOMASTIA [None]
  - NON-HODGKIN'S LYMPHOMA [None]
  - TONSILLAR DISORDER [None]
